FAERS Safety Report 24637461 (Version 1)
Quarter: 2024Q4

REPORT INFORMATION
  Report Type: Spontaneous
  Country: US (occurrence: US)
  Receive Date: 20241119
  Receipt Date: 20241119
  Transmission Date: 20250114
  Serious: Yes (Death, Other)
  Sender: ALEXION PHARMACEUTICALS
  Company Number: US-SA-2024SA322220

PATIENT
  Age: 18 Month

DRUGS (5)
  1. BEYFORTUS [Suspect]
     Active Substance: NIRSEVIMAB-ALIP
     Dosage: UNK UNK, 1X
     Route: 065
  2. TACROLIMUS [Concomitant]
     Active Substance: TACROLIMUS
     Dosage: UNK
  3. SODIUM BICARBONATE [Concomitant]
     Active Substance: SODIUM BICARBONATE
     Dosage: UNK
  4. ASPIRIN [Concomitant]
     Active Substance: ASPIRIN
     Dosage: UNK
  5. RAPAMUNE [Concomitant]
     Active Substance: SIROLIMUS
     Dosage: UNK

REACTIONS (4)
  - Feeling abnormal [Fatal]
  - Feeling hot [Fatal]
  - Dyskinesia [Fatal]
  - Unresponsive to stimuli [Fatal]
